FAERS Safety Report 7036741-X (Version None)
Quarter: 2010Q4

REPORT INFORMATION
  Report Type: 
  Country: None (occurrence: None)
  Receive Date: 20101011
  Receipt Date: 20100929
  Transmission Date: 20110411
  Serious: No
  Sender: FDA-Public Use
  Company Number: 2009BI024078

PATIENT
  Sex: Female

DRUGS (1)
  1. TYSABRI [Suspect]
     Indication: MULTIPLE SCLEROSIS
     Route: 042
     Dates: start: 20090723

REACTIONS (9)
  - ASTHENIA [None]
  - BALANCE DISORDER [None]
  - DRUG EFFECT DECREASED [None]
  - DRUG EFFECT DELAYED [None]
  - GAIT DISTURBANCE [None]
  - MENSTRUAL DISORDER [None]
  - NAUSEA [None]
  - PAIN [None]
  - PALPITATIONS [None]
